FAERS Safety Report 8345138-1 (Version None)
Quarter: 2012Q2

REPORT INFORMATION
  Report Type: 
  Country: None (occurrence: None)
  Receive Date: 20120508
  Receipt Date: 20120504
  Transmission Date: 20120825
  Serious: Yes (Other)
  Sender: FDA-Public Use
  Company Number: SE-PFIZER INC-2012099470

PATIENT
  Age: 38 Year
  Sex: Female

DRUGS (3)
  1. IMOVANE [Concomitant]
     Dosage: 3.5 MG, UNK
  2. OXAZEPAM [Concomitant]
     Dosage: 10 MG IN THE MORNING, 7.5 MG IN THE AFTERNOON
  3. LYRICA [Suspect]
     Dosage: 25 MG, UNK

REACTIONS (10)
  - TREMOR [None]
  - ABDOMINAL DISCOMFORT [None]
  - ANXIETY [None]
  - IRRITABILITY [None]
  - DEPRESSION [None]
  - HYPERHIDROSIS [None]
  - PANIC ATTACK [None]
  - FATIGUE [None]
  - PANIC DISORDER [None]
  - EPISTAXIS [None]
